FAERS Safety Report 8193166-1 (Version None)
Quarter: 2012Q1

REPORT INFORMATION
  Report Type: 
  Country: None (occurrence: None)
  Receive Date: 20120221
  Receipt Date: 20111116
  Transmission Date: 20120608
  Serious: No
  Sender: FDA-Public Use
  Company Number: 028890

PATIENT
  Sex: Female
  Weight: 47.6 kg

DRUGS (11)
  1. LACOSAMIDE [Suspect]
     Indication: CONVULSION
     Dosage: (50 MG BID ORAL)
     Route: 048
     Dates: start: 20101130, end: 20110305
  2. LACOSAMIDE [Suspect]
     Indication: EPILEPSY
     Dosage: (50 MG BID ORAL)
     Route: 048
     Dates: start: 20101130, end: 20110305
  3. ZYPREXA [Concomitant]
  4. VITAMIN B NOS [Concomitant]
  5. ESTRADIOL [Concomitant]
  6. LAMICTAL [Concomitant]
  7. SYNTHROID [Concomitant]
  8. MULTI-VITAMINS [Concomitant]
  9. EFFEXOR XR [Concomitant]
  10. DILANTIN [Concomitant]
  11. PHENOBARBITAL TAB [Concomitant]

REACTIONS (2)
  - PARAESTHESIA [None]
  - RASH GENERALISED [None]
